FAERS Safety Report 10618336 (Version 1)
Quarter: 2014Q4

REPORT INFORMATION
  Report Type: Spontaneous
  Country: BN (occurrence: BN)
  Receive Date: 20141202
  Receipt Date: 20141202
  Transmission Date: 20150529
  Serious: Yes (Other)
  Sender: FDA-Public Use
  Company Number: BN-ALEXION PHARMACEUTICALS INC-A201404459

PATIENT

DRUGS (1)
  1. SOLIRIS [Suspect]
     Active Substance: ECULIZUMAB
     Indication: PAROXYSMAL NOCTURNAL HAEMOGLOBINURIA
     Dosage: 600 MG, Q2W
     Route: 042

REACTIONS (3)
  - Haemoglobin decreased [Recovered/Resolved]
  - Pyrexia [Recovered/Resolved]
  - Incorrect dose administered [Unknown]
